FAERS Safety Report 14017470 (Version 1)
Quarter: 2017Q3

REPORT INFORMATION
  Report Type: Spontaneous
  Country: US (occurrence: US)
  Receive Date: 20170927
  Receipt Date: 20170927
  Transmission Date: 20171128
  Serious: No
  Sender: FDA-Public Use
  Company Number: US-GLAXOSMITHKLINE-US2017GSK146869

PATIENT
  Sex: Female

DRUGS (8)
  1. DIGOXIN. [Concomitant]
     Active Substance: DIGOXIN
  2. WALDRYL [Concomitant]
  3. METOPROLOL. [Concomitant]
     Active Substance: METOPROLOL
  4. WARFARIN [Concomitant]
     Active Substance: WARFARIN
  5. SORIATANE [Suspect]
     Active Substance: ACITRETIN
     Dosage: 25 MG, QD
  6. SORIATANE [Suspect]
     Active Substance: ACITRETIN
     Dosage: 25 MG, BID
  7. ARMOUR THYROID [Concomitant]
     Active Substance: THYROID, PORCINE
  8. SORIATANE [Suspect]
     Active Substance: ACITRETIN
     Indication: PSORIASIS
     Dosage: 25 MG, BID

REACTIONS (2)
  - Condition aggravated [Not Recovered/Not Resolved]
  - Rash [Not Recovered/Not Resolved]
